FAERS Safety Report 24809800 (Version 1)
Quarter: 2025Q1

REPORT INFORMATION
  Report Type: Spontaneous
  Country: US (occurrence: US)
  Receive Date: 20250106
  Receipt Date: 20250106
  Transmission Date: 20250408
  Serious: Yes (Other)
  Sender: BAYER HEALTHCARE PHARMACEUTICALS INC.
  Company Number: US-BAYER-2025A001186

PATIENT
  Sex: Male

DRUGS (6)
  1. KERENDIA [Suspect]
     Active Substance: FINERENONE
     Indication: Type 2 diabetes mellitus
     Dates: start: 20250102, end: 20250102
  2. KERENDIA [Suspect]
     Active Substance: FINERENONE
     Indication: Acute kidney injury
  3. ELIQUIS [Suspect]
     Active Substance: APIXABAN
  4. FARXIGA [Concomitant]
     Active Substance: DAPAGLIFLOZIN PROPANEDIOL
  5. ZETIA [Concomitant]
     Active Substance: EZETIMIBE
  6. SIMVASTATIN [Concomitant]
     Active Substance: SIMVASTATIN

REACTIONS (1)
  - Haematochezia [None]

NARRATIVE: CASE EVENT DATE: 20250103
